FAERS Safety Report 6343353-X (Version None)
Quarter: 2009Q3

REPORT INFORMATION
  Report Type: 
  Country: None (occurrence: None)
  Receive Date: 20090908
  Receipt Date: 20090828
  Transmission Date: 20100115
  Serious: Yes (Other)
  Sender: FDA-Public Use
  Company Number: PHHY2009JP36931

PATIENT
  Age: 71 Year
  Sex: Female

DRUGS (4)
  1. ZOMETA [Suspect]
     Indication: BONE LESION
     Dosage: 4 MG EVERY 4 WEEKS
     Route: 042
     Dates: start: 20081224, end: 20090722
  2. ZOMETA [Suspect]
     Indication: MULTIPLE MYELOMA
  3. MELPHALAN HYDROCHLORIDE [Concomitant]
     Route: 048
  4. PREDONINE [Concomitant]
     Route: 048

REACTIONS (3)
  - BONE DISORDER [None]
  - OSTEONECROSIS [None]
  - SWELLING [None]
